FAERS Safety Report 7388331-7 (Version None)
Quarter: 2011Q2

REPORT INFORMATION
  Report Type: 
  Country: None (occurrence: None)
  Receive Date: 20110401
  Receipt Date: 20110324
  Transmission Date: 20111010
  Serious: Yes (Hospitalization)
  Sender: FDA-Public Use
  Company Number: TR-TEVA-273205USA

PATIENT
  Age: 40 Year
  Sex: Female

DRUGS (5)
  1. PIMOZIDE TABLETS [Suspect]
     Indication: ILL-DEFINED DISORDER
     Dosage: 2 MG IN 1 DAY
     Route: 065
  2. HALOPERIDOL [Suspect]
     Indication: ILL-DEFINED DISORDER
     Dosage: 15 MG, IN 1 DAY, 10 MG, IN 1 DAY
     Route: 030
  3. CHLORPROMAZINE [Suspect]
     Indication: ILL-DEFINED DISORDER
     Dosage: 75 MG IN 1 DAY, 50 MG IN 1 DAY
     Route: 030
  4. RISPERIDONE [Suspect]
     Indication: ILL-DEFINED DISORDER
     Dosage: 3 MG IN 1 DAY
  5. VENLAFAXINE [Suspect]
     Indication: DEPRESSION
     Dosage: 150 MG, IN 1 DAY

REACTIONS (1)
  - HEPATITIS CHOLESTATIC [None]
